FAERS Safety Report 16193332 (Version 1)
Quarter: 2019Q2

REPORT INFORMATION
  Report Type: Spontaneous
  Country: NL (occurrence: NL)
  Receive Date: 20190413
  Receipt Date: 20190413
  Transmission Date: 20190711
  Serious: Yes (Other)
  Sender: FDA-Public Use
  Company Number: NL-ACCORD-121500

PATIENT
  Age: 50 Year
  Sex: Male

DRUGS (6)
  1. ALFACALCIDOL [Concomitant]
     Active Substance: ALFACALCIDOL
     Dosage: 1 X DAILY 1-2 CAPSULES
     Dates: start: 20130610
  2. COLECALCIFEROL [Concomitant]
     Active Substance: CHOLECALCIFEROL
     Dosage: 1 X / 2 WEEKS 2 AMPOULES OF 1 ML
     Dates: start: 20171018
  3. COLECALCIFEROL [Concomitant]
     Active Substance: CHOLECALCIFEROL
     Dates: start: 20180820
  4. TAMSULOSIN/TAMSULOSIN HYDROCHLORIDE [Concomitant]
     Dosage: 1 X DAILY 1 CAPSULE
     Dates: start: 20171018
  5. LOSARTAN. [Concomitant]
     Active Substance: LOSARTAN
     Dosage: 1 XDAILY 1 TABLET IN THE MORNING
     Dates: start: 20130802
  6. PRAVASTATIN. [Suspect]
     Active Substance: PRAVASTATIN
     Indication: CARDIOVASCULAR EVENT PROPHYLAXIS
     Dosage: 40 MG (1X PER DAY 1 PIECE)
     Dates: start: 20180806, end: 20180817

REACTIONS (2)
  - Loss of consciousness [Recovered/Resolved]
  - Myalgia [Unknown]

NARRATIVE: CASE EVENT DATE: 20180813
